FAERS Safety Report 18015464 (Version 1)
Quarter: 2020Q3

REPORT INFORMATION
  Report Type: Spontaneous
  Country: US (occurrence: US)
  Receive Date: 20200713
  Receipt Date: 20200713
  Transmission Date: 20201103
  Serious: No
  Sender: FDA-Public Use
  Company Number: US-NXDC-GLE-0027-2020-NVS

PATIENT
  Age: 40 Year
  Sex: Female

DRUGS (1)
  1. GLEOLAN [Suspect]
     Active Substance: AMINOLEVULINIC ACID HYDROCHLORIDE
     Indication: PHOTODYNAMIC DIAGNOSTIC PROCEDURE

REACTIONS (2)
  - Unintentional use for unapproved indication [Unknown]
  - Drug ineffective [Unknown]

NARRATIVE: CASE EVENT DATE: 20200604
